FAERS Safety Report 7816286-7 (Version None)
Quarter: 2011Q4

REPORT INFORMATION
  Report Type: 
  Country: None (occurrence: None)
  Receive Date: 20111016
  Receipt Date: 20110922
  Transmission Date: 20120403
  Serious: Yes (Hospitalization)
  Sender: FDA-Public Use
  Company Number: BR-ROCHE-772162

PATIENT
  Sex: Female
  Weight: 80 kg

DRUGS (16)
  1. PREDNISONE [Concomitant]
  2. PREDNISONE [Concomitant]
  3. FUROSEMIDE [Concomitant]
  4. MABTHERA [Suspect]
     Indication: PRODUCT USED FOR UNKNOWN INDICATION
     Route: 065
     Dates: start: 20100201, end: 20100301
  5. ASPIRIN [Concomitant]
  6. NEBIVOLOL HCL [Concomitant]
  7. NARCARICIN [Concomitant]
     Dosage: REPORTED AS NARCARICINA
  8. CITALOPRAM [Concomitant]
  9. ALLOPURINOL [Concomitant]
  10. CLOPIDOGREL [Concomitant]
  11. HALOPERIDOL [Concomitant]
  12. FORMOTEROL FUMARATE [Concomitant]
  13. ATORVASTATIN [Concomitant]
  14. CHLOROQUINE DIPHOSPHATE [Concomitant]
  15. LIPLESS [Concomitant]
  16. LEXOTAN [Concomitant]

REACTIONS (2)
  - MYOCARDIAL INFARCTION [None]
  - EMPHYSEMA [None]
